FAERS Safety Report 9456488 (Version 1)
Quarter: 2013Q3

REPORT INFORMATION
  Report Type: Spontaneous
  Country: FR (occurrence: None)
  Receive Date: 20130809
  Receipt Date: 20130809
  Transmission Date: 20140515
  Serious: Yes (Hospitalization)
  Sender: FDA-Public Use
  Company Number: FR-ALSI-201300203

PATIENT
  Age: 65 Year
  Sex: Female

DRUGS (2)
  1. OXYGEN [Suspect]
     Indication: MAXILLOFACIAL OPERATION
     Dosage: 30% TOTAL RESPIRATORY
  2. POLYVIDONE [Concomitant]

REACTIONS (7)
  - Procedural complication [None]
  - Thermal burn [None]
  - Injury [None]
  - Respiratory fume inhalation disorder [None]
  - Haemodynamic instability [None]
  - Oxygen saturation decreased [None]
  - Blood pressure systolic decreased [None]
